FAERS Safety Report 18628435 (Version 1)
Quarter: 2020Q4

REPORT INFORMATION
  Report Type: Spontaneous
  Country: DE (occurrence: DE)
  Receive Date: 20201217
  Receipt Date: 20201217
  Transmission Date: 20210114
  Serious: Yes (Hospitalization, Other)
  Sender: FDA-Public Use
  Company Number: DE-PFIZER INC-2020496274

PATIENT
  Age: 58 Year
  Sex: Female
  Weight: 65 kg

DRUGS (11)
  1. COLECALCIFEROL [Concomitant]
     Active Substance: CHOLECALCIFEROL
     Dosage: 1000 IU, 1X/DAY (1-0-0-0)
  2. PREGABALIN. [Suspect]
     Active Substance: PREGABALIN
     Dosage: 25 MG, 1-0-2-0
  3. HEPAR SL FORTE [Concomitant]
     Dosage: 600 MG, 1X/DAY (1-0-0-0)
  4. FOLIC ACID. [Concomitant]
     Active Substance: FOLIC ACID
     Dosage: 5 MG, 1X/DAY (1-0-0-0)
  5. CALCIMAGON D3 [Concomitant]
     Active Substance: CALCIUM\CHOLECALCIFEROL
     Dosage: 1 DF, 1X/DAY (CALCIUM CARBONATE 500 MG/COLECALCIFEROL 400 IU)
  6. METAMIZOL [Concomitant]
     Active Substance: METAMIZOLE SODIUM
     Dosage: 500 MG, AS NEEDED
  7. ALEPAFORT [Concomitant]
     Dosage: 208.9 MG, 1X/DAY (1-0-0-0)
  8. SELEN (IV) - ION [Concomitant]
     Dosage: UNK
  9. VITAMIN B12 LOGES [Concomitant]
     Dosage: UNK, 1X/DAY
  10. TAMOXIFEN [Suspect]
     Active Substance: TAMOXIFEN
     Dosage: 20 MG, 1X/DAY (1-0-0-0)
  11. IRON [Concomitant]
     Active Substance: IRON
     Dosage: 40 MG, 2X/DAY (1-0-1-0)

REACTIONS (4)
  - Nausea [Unknown]
  - Hepatic cirrhosis [Unknown]
  - Jaundice [Unknown]
  - Ascites [Unknown]
